FAERS Safety Report 4481907-6 (Version None)
Quarter: 2004Q4

REPORT INFORMATION
  Report Type: 
  Country: None (occurrence: None)
  Receive Date: 20041022
  Receipt Date: 20041007
  Transmission Date: 20050328
  Serious: Yes (Death, Life-Threatening)
  Sender: FDA-Public Use
  Company Number: JP-JNJFOC-20041002822

PATIENT
  Sex: Male
  Weight: 47 kg

DRUGS (5)
  1. REMICADE [Suspect]
     Indication: CROHN'S DISEASE
     Route: 042
  2. IMURAN [Concomitant]
     Route: 049
  3. PENTASA [Concomitant]
     Route: 049
  4. ELENTAL [Concomitant]
     Route: 049
  5. ELENTAL [Concomitant]
     Route: 049

REACTIONS (3)
  - BACK PAIN [None]
  - CARCINOMA [None]
  - DRUG INEFFECTIVE [None]
